FAERS Safety Report 16294817 (Version 2)
Quarter: 2020Q2

REPORT INFORMATION
  Report Type: Spontaneous
  Country: US (occurrence: US)
  Receive Date: 20190509
  Receipt Date: 20200505
  Transmission Date: 20200713
  Serious: No
  Sender: FDA-Public Use
  Company Number: US-ROCHE-2213414

PATIENT
  Sex: Male

DRUGS (5)
  1. PREDNISONE. [Concomitant]
     Active Substance: PREDNISONE
  2. POTASSIUM [Concomitant]
     Active Substance: POTASSIUM
  3. ESBRIET [Suspect]
     Active Substance: PIRFENIDONE
     Indication: ACUTE MYELOID LEUKAEMIA
     Route: 048
     Dates: start: 20180310
  4. NEXAVAR [Concomitant]
     Active Substance: SORAFENIB
  5. ESBRIET [Suspect]
     Active Substance: PIRFENIDONE
     Indication: GRAFT VERSUS HOST DISEASE

REACTIONS (3)
  - Fungal infection [Unknown]
  - Intentional product use issue [Unknown]
  - Off label use [Unknown]
